FAERS Safety Report 6258067-4 (Version None)
Quarter: 2009Q3

REPORT INFORMATION
  Report Type: 
  Country: None (occurrence: None)
  Receive Date: 20090707
  Receipt Date: 20090629
  Transmission Date: 20100115
  Serious: Yes (Other)
  Sender: FDA-Public Use
  Company Number: CA-JNJFOC-20090609719

PATIENT
  Sex: Female
  Weight: 71.4 kg

DRUGS (1)
  1. REMICADE [Suspect]
     Indication: CROHN'S DISEASE
     Dosage: TOTAL DOSES RECEIVED = 4
     Route: 042

REACTIONS (1)
  - BRAIN NEOPLASM [None]
